FAERS Safety Report 4641914-7 (Version None)
Quarter: 2005Q2

REPORT INFORMATION
  Report Type: 
  Country: None (occurrence: None)
  Receive Date: 20050420
  Receipt Date: 20050404
  Transmission Date: 20051028
  Serious: Yes (Hospitalization, Other)
  Sender: FDA-Public Use
  Company Number: USA050494870

PATIENT
  Age: 9 Year
  Sex: Male

DRUGS (3)
  1. HUMALOG [Suspect]
     Dosage: 6 U
  2. HUMULIN N [Suspect]
     Dates: end: 20041201
  3. LANTUS [Concomitant]

REACTIONS (2)
  - CONVULSION [None]
  - PHARMACEUTICAL PRODUCT COMPLAINT [None]
